FAERS Safety Report 8140446-1 (Version None)
Quarter: 2012Q1

REPORT INFORMATION
  Report Type: 
  Country: None (occurrence: None)
  Receive Date: 20120216
  Receipt Date: 20120209
  Transmission Date: 20120608
  Serious: Yes (Other)
  Sender: FDA-Public Use
  Company Number: JP-PFIZER INC-2012039200

PATIENT
  Age: 64 Year
  Sex: Male

DRUGS (7)
  1. CELECOXIB [Suspect]
     Indication: ANALGESIC THERAPY
     Dosage: 100 MG, UNK
     Route: 048
     Dates: start: 20120207
  2. RASILEZ [Concomitant]
     Dosage: UNK
  3. ALLOPURINOL [Concomitant]
     Dosage: UNK
  4. SINLESTAL [Concomitant]
     Dosage: UNK
  5. PRAVASTATIN SODIUM [Concomitant]
     Dosage: UNK
  6. FAMOTIDINE [Suspect]
     Indication: GASTRITIS
     Dosage: 20 MG, UNK
     Route: 048
     Dates: start: 20120207
  7. ADALAT [Concomitant]
     Dosage: UNK

REACTIONS (2)
  - FACE OEDEMA [None]
  - URTICARIA [None]
